FAERS Safety Report 7150882-8 (Version None)
Quarter: 2010Q4

REPORT INFORMATION
  Report Type: 
  Country: None (occurrence: None)
  Receive Date: 20101210
  Receipt Date: 20101202
  Transmission Date: 20110411
  Serious: Yes (Death)
  Sender: FDA-Public Use
  Company Number: IT-ROCHE-745918

PATIENT
  Sex: Female

DRUGS (9)
  1. HERCEPTIN [Suspect]
     Route: 042
     Dates: start: 20100901, end: 20101001
  2. HERCEPTIN [Suspect]
     Route: 042
     Dates: start: 20091101, end: 20100201
  3. HERCEPTIN [Suspect]
     Route: 042
     Dates: start: 20100701, end: 20100801
  4. HERCEPTIN [Suspect]
     Route: 042
     Dates: start: 20100801, end: 20100901
  5. HERCEPTIN [Suspect]
     Route: 042
     Dates: start: 20100924, end: 20101102
  6. TYKERB [Suspect]
     Route: 048
     Dates: start: 20100301, end: 20100701
  7. TYKERB [Suspect]
     Dosage: FREQUENCY: DAILY, ROUTE: OS
     Route: 048
     Dates: start: 20100924, end: 20101102
  8. LANOXIN [Concomitant]
     Dosage: ROUTE:OS
     Route: 048
     Dates: start: 20101025, end: 20101102
  9. TAZOCIN [Concomitant]
     Route: 042
     Dates: start: 20101102, end: 20101103

REACTIONS (4)
  - DEATH [None]
  - DIARRHOEA [None]
  - STOMATITIS [None]
  - TUMOUR ASSOCIATED FEVER [None]
